FAERS Safety Report 5196883-0 (Version None)
Quarter: 2007Q1

REPORT INFORMATION
  Report Type: 
  Country: None (occurrence: None)
  Receive Date: 20070103
  Receipt Date: 20061227
  Transmission Date: 20070707
  Serious: Yes (Other)
  Sender: FDA-Public Use
  Company Number: 2006UW28606

PATIENT
  Age: 66 Year
  Sex: Female
  Weight: 61.2 kg

DRUGS (2)
  1. ARIMIDEX [Suspect]
     Indication: BREAST CANCER
     Route: 048
  2. LIPITOR [Concomitant]

REACTIONS (3)
  - BLOOD URINE PRESENT [None]
  - URINE ABNORMALITY [None]
  - UTERINE LEIOMYOMA [None]
